FAERS Safety Report 8445177-6 (Version None)
Quarter: 2012Q2

REPORT INFORMATION
  Report Type: 
  Country: None (occurrence: None)
  Receive Date: 20120618
  Receipt Date: 20120613
  Transmission Date: 20120825
  Serious: Yes (Hospitalization)
  Sender: FDA-Public Use
  Company Number: IT-ROCHE-1078390

PATIENT
  Sex: Male

DRUGS (6)
  1. IRBESARTAN [Concomitant]
     Route: 048
     Dates: start: 20080520, end: 20120306
  2. ASPIRIN [Concomitant]
     Route: 048
     Dates: start: 20060517, end: 20120306
  3. CORDARONE [Concomitant]
     Route: 048
     Dates: start: 20060605, end: 20120306
  4. UNOPROST (ITALY) [Concomitant]
     Route: 048
     Dates: start: 20050203, end: 20120306
  5. ROCEPHIN [Suspect]
     Indication: BRONCHITIS
     Dosage: 1G/3,5 ML
     Route: 030
     Dates: start: 20120305, end: 20120306
  6. BETAMETHASONE SODIUM PHOSPHATE [Concomitant]
     Route: 030
     Dates: start: 20120305, end: 20120306

REACTIONS (2)
  - RESPIRATORY FAILURE [None]
  - HYPERSENSITIVITY [None]
